FAERS Safety Report 15148836 (Version 1)
Quarter: 2018Q3

REPORT INFORMATION
  Report Type: Spontaneous
  Country: SI (occurrence: SI)
  Receive Date: 20180716
  Receipt Date: 20180716
  Transmission Date: 20181010
  Serious: Yes (Death, Life-Threatening, Hospitalization, Other)
  Sender: FDA-Public Use
  Company Number: SI-JNJFOC-20180710353

PATIENT
  Age: 70 Year
  Sex: Male

DRUGS (1)
  1. XARELTO [Suspect]
     Active Substance: RIVAROXABAN
     Indication: DEEP VEIN THROMBOSIS
     Route: 048
     Dates: start: 20161011, end: 20180705

REACTIONS (5)
  - Cerebral haemorrhage [Fatal]
  - Intracranial mass [Unknown]
  - Leukopenia [Unknown]
  - Thrombocytopenia [Unknown]
  - Posthaemorrhagic hydrocephalus [Unknown]

NARRATIVE: CASE EVENT DATE: 20180705
